FAERS Safety Report 9826294 (Version 2)
Quarter: 2014Q2

REPORT INFORMATION
  Report Type: Spontaneous
  Country: US (occurrence: US)
  Receive Date: 20140117
  Receipt Date: 20140414
  Transmission Date: 20141212
  Serious: No
  Sender: FDA-Public Use
  Company Number: US-BIOGENIDEC-2014BI000971

PATIENT
  Age: 54 Year
  Sex: Female
  Weight: 74 kg

DRUGS (2)
  1. TECFIDERA [Suspect]
     Indication: MULTIPLE SCLEROSIS
     Route: 048
     Dates: start: 20130716, end: 20130723
  2. TECFIDERA [Suspect]
     Indication: MULTIPLE SCLEROSIS
     Route: 048
     Dates: start: 20130724, end: 20131227

REACTIONS (11)
  - Multiple sclerosis [Unknown]
  - Limb discomfort [Unknown]
  - Constipation [Unknown]
  - Hypoaesthesia [Unknown]
  - Fall [Recovered/Resolved]
  - Gait disturbance [Unknown]
  - Drug ineffective [Unknown]
  - Central nervous system lesion [Unknown]
  - Sjogren^s syndrome [Unknown]
  - Malaise [Unknown]
  - Muscular weakness [Recovered/Resolved]
